FAERS Safety Report 10622646 (Version 1)
Quarter: 2014Q4

REPORT INFORMATION
  Report Type: Report from Study
  Country: US (occurrence: US)
  Receive Date: 20141203
  Receipt Date: 20141203
  Transmission Date: 20150529
  Serious: Yes (Hospitalization)
  Sender: FDA-Public Use
  Company Number: US-ACTELION-A-US2014-109059

PATIENT
  Age: 67 Year
  Sex: Female

DRUGS (2)
  1. VENTAVIS [Suspect]
     Active Substance: ILOPROST
     Indication: COR PULMONALE CHRONIC
     Dosage: UNK
     Route: 055
  2. TRACLEER [Suspect]
     Active Substance: BOSENTAN\BOSENTAN MONOHYDRATE
     Indication: COR PULMONALE CHRONIC
     Dosage: UNK
     Route: 048

REACTIONS (3)
  - Myocardial infarction [Unknown]
  - Abdominal hernia [Unknown]
  - Dyspnoea [Unknown]

NARRATIVE: CASE EVENT DATE: 20141102
